FAERS Safety Report 6019550-X (Version None)
Quarter: 2008Q4

REPORT INFORMATION
  Report Type: 
  Country: None (occurrence: None)
  Receive Date: 20081224
  Receipt Date: 20081215
  Transmission Date: 20090506
  Serious: Yes (Other)
  Sender: FDA-Public Use
  Company Number: PHEH2006US15259

PATIENT
  Sex: Male

DRUGS (2)
  1. AREDIA [Suspect]
     Dosage: UNK
  2. CHEMOTHERAPEUTICS NOS [Concomitant]
     Dosage: UNK
     Dates: start: 20001201

REACTIONS (10)
  - ANXIETY [None]
  - BONE DISORDER [None]
  - DECREASED INTEREST [None]
  - DENTAL CARIES [None]
  - DENTAL PULP DISORDER [None]
  - GENERAL PHYSICAL HEALTH DETERIORATION [None]
  - OSTEONECROSIS [None]
  - PAIN [None]
  - SENSITIVITY OF TEETH [None]
  - TOOTH FRACTURE [None]
